FAERS Safety Report 9455390 (Version 1)
Quarter: 2013Q3

REPORT INFORMATION
  Report Type: Spontaneous
  Country: NL (occurrence: NL)
  Receive Date: 20130813
  Receipt Date: 20130813
  Transmission Date: 20140515
  Serious: Yes (Hospitalization)
  Sender: FDA-Public Use
  Company Number: PHHY2013NL085922

PATIENT
  Sex: Male

DRUGS (4)
  1. CARBAMAZEPINE [Suspect]
     Indication: TRIGEMINAL NEURALGIA
     Dosage: 2 DF, DAILY
     Dates: start: 201304, end: 20130712
  2. PANTOPRAZOL [Concomitant]
     Dosage: 1 DF, DAILY
  3. VALSARTAN [Concomitant]
     Dosage: 1 DF, DAILY
  4. PAROXETINE [Concomitant]
     Dosage: 1 DF, DAILY

REACTIONS (2)
  - Hyperhidrosis [Recovered/Resolved]
  - Pyrexia [Recovered/Resolved]
